FAERS Safety Report 25564681 (Version 1)
Quarter: 2025Q3

REPORT INFORMATION
  Report Type: Spontaneous
  Country: US (occurrence: None)
  Receive Date: 20250714
  Receipt Date: 20250714
  Transmission Date: 20251020
  Serious: Yes (Hospitalization)
  Sender: FDA-CTU
  Company Number: None

PATIENT
  Sex: Female

DRUGS (3)
  1. SUNITINIB MALATE [Suspect]
     Active Substance: SUNITINIB MALATE
     Indication: Gastrointestinal stromal tumour
     Dosage: 50 MG DAILY ORAL ?
     Route: 048
     Dates: start: 20250102
  2. MIRTAZAPINE [Concomitant]
     Active Substance: MIRTAZAPINE
  3. NIFEDIPINE [Concomitant]
     Active Substance: NIFEDIPINE

REACTIONS (6)
  - Hypertension [None]
  - Dyspnoea [None]
  - Hiccups [None]
  - Nausea [None]
  - Decreased appetite [None]
  - Throat irritation [None]
